FAERS Safety Report 7489412-X (Version None)
Quarter: 2011Q2

REPORT INFORMATION
  Report Type: 
  Country: None (occurrence: None)
  Receive Date: 20110518
  Receipt Date: 20110516
  Transmission Date: 20111010
  Serious: Yes (Hospitalization)
  Sender: FDA-Public Use
  Company Number: US-MERCK-1104USA04071

PATIENT
  Age: 61 Year
  Sex: Female

DRUGS (6)
  1. JANUVIA [Suspect]
     Indication: DIABETES MELLITUS
     Route: 048
     Dates: start: 20100101, end: 20110428
  2. AMLODIPINE BESYLATE [Concomitant]
     Route: 065
  3. MAGNESIUM OXIDE [Concomitant]
     Route: 065
  4. METFORMIN HYDROCHLORIDE [Concomitant]
     Route: 065
  5. OMEPRAZOLE [Concomitant]
     Route: 065
  6. HYDROCHLOROTHIAZIDE AND METOPROLOL TARTRATE [Concomitant]
     Route: 065

REACTIONS (10)
  - ASTHENIA [None]
  - NAUSEA [None]
  - RENAL DISORDER [None]
  - PALPITATIONS [None]
  - HYPERHIDROSIS [None]
  - GASTRIC DISORDER [None]
  - HEADACHE [None]
  - RESPIRATORY DISORDER [None]
  - FEELING JITTERY [None]
  - DIARRHOEA [None]
